FAERS Safety Report 8733670 (Version 5)
Quarter: 2013Q3

REPORT INFORMATION
  Report Type: Report from Study
  Country: DE (occurrence: DE)
  Receive Date: 20120821
  Receipt Date: 20130709
  Transmission Date: 20140515
  Serious: Yes (Other)
  Sender: FDA-Public Use
  Company Number: PHHY2011DE73932

PATIENT
  Age: 23 Year
  Sex: Female

DRUGS (2)
  1. EXTAVIA [Suspect]
     Indication: MULTIPLE SCLEROSIS
     Dosage: 1 ML, QOD
     Route: 058
     Dates: start: 20100928, end: 20130628
  2. IBUPROFEN [Concomitant]
     Dosage: 400 MG, ON DEMAND
     Route: 048

REACTIONS (7)
  - Multiple sclerosis relapse [Not Recovered/Not Resolved]
  - Sensory disturbance [Not Recovered/Not Resolved]
  - Hypoaesthesia [Not Recovered/Not Resolved]
  - Central nervous system lesion [Unknown]
  - Viral infection [Unknown]
  - Oedema [Unknown]
  - Agitation [Recovered/Resolved]
